FAERS Safety Report 19205771 (Version 2)
Quarter: 2024Q3

REPORT INFORMATION
  Report Type: Spontaneous
  Country: US (occurrence: None)
  Receive Date: 20210503
  Receipt Date: 20240906
  Transmission Date: 20241017
  Serious: No
  Sender: DOMPE FARMACEUTICI
  Company Number: US-FARMAPROD-202102-0282

PATIENT
  Age: 80 Year
  Sex: Female

DRUGS (34)
  1. OXERVATE [Suspect]
     Active Substance: CENEGERMIN-BKBJ
     Indication: Neurotrophic keratopathy
     Route: 047
     Dates: start: 20210222, end: 20210418
  2. OXERVATE [Suspect]
     Active Substance: CENEGERMIN-BKBJ
     Route: 047
     Dates: start: 20210419, end: 20210615
  3. OXERVATE [Suspect]
     Active Substance: CENEGERMIN-BKBJ
     Route: 047
     Dates: start: 20230626, end: 20230817
  4. OXERVATE [Suspect]
     Active Substance: CENEGERMIN-BKBJ
     Route: 047
     Dates: start: 20240212
  5. OXERVATE [Suspect]
     Active Substance: CENEGERMIN-BKBJ
  6. OXERVATE [Suspect]
     Active Substance: CENEGERMIN-BKBJ
  7. OXERVATE [Suspect]
     Active Substance: CENEGERMIN-BKBJ
  8. MINERALS\VITAMINS [Concomitant]
     Active Substance: MINERALS\VITAMINS
     Dosage: 400-250 MCG
  9. VITAMIN D3 [Concomitant]
     Active Substance: CHOLECALCIFEROL
  10. ARTIFICIAL TEARS [Concomitant]
  11. FLUOROMETHOLONE [Concomitant]
     Active Substance: FLUOROMETHOLONE
  12. TIMOLOL MALEATE [Concomitant]
     Active Substance: TIMOLOL MALEATE
  13. VALACYCLOVIR [Concomitant]
     Active Substance: VALACYCLOVIR HYDROCHLORIDE
  14. BUPROPION HYDROCHLORIDE [Concomitant]
     Active Substance: BUPROPION HYDROCHLORIDE
     Dosage: EXTENDED RELEASE TABLET
  15. DONEPEZIL HYDROCHLORIDE [Concomitant]
     Active Substance: DONEPEZIL HYDROCHLORIDE
  16. AMLODIPINE BESYLATE [Concomitant]
     Active Substance: AMLODIPINE BESYLATE
  17. HYDROCHLOROTHIAZIDE [Concomitant]
     Active Substance: HYDROCHLOROTHIAZIDE
  18. FAMCICLOVIR [Concomitant]
     Active Substance: FAMCICLOVIR
  19. SOOTHE HYDRATION [Concomitant]
     Active Substance: POVIDONE
  20. ERYTHROMYCIN [Concomitant]
     Active Substance: ERYTHROMYCIN
  21. PREDNISOLONE-BROMFENAC [Concomitant]
  22. LATANOPROST [Concomitant]
     Active Substance: LATANOPROST
  23. DOCUPRENE [Concomitant]
     Active Substance: DOCUSATE SODIUM
  24. VITAMINS [Concomitant]
     Active Substance: VITAMINS
  25. ROSUVASTATIN-EZETIMIBE [Concomitant]
  26. AMLODIPINE AND ATORVASTATIN [Concomitant]
     Active Substance: AMLODIPINE BESYLATE\ATORVASTATIN CALCIUM
  27. MEMANTINE [Concomitant]
     Active Substance: MEMANTINE
  28. ASPIRIN [Concomitant]
     Active Substance: ASPIRIN
  29. HYDROCHLOROTHIAZIDE [Concomitant]
     Active Substance: HYDROCHLOROTHIAZIDE
  30. SERTRALINE HYDROCHLORIDE [Concomitant]
     Active Substance: SERTRALINE HYDROCHLORIDE
  31. VITAMIN D3 [Concomitant]
     Active Substance: CHOLECALCIFEROL
     Dosage: 10 (400 IU) / ML
  32. REXULTI [Concomitant]
     Active Substance: BREXPIPRAZOLE
  33. TIMOLOL MALEATE [Concomitant]
     Active Substance: TIMOLOL MALEATE
  34. DONEPEZIL HYDROCHLORIDE [Concomitant]
     Active Substance: DONEPEZIL HYDROCHLORIDE

REACTIONS (7)
  - Eye pain [Not Recovered/Not Resolved]
  - Ocular discomfort [Not Recovered/Not Resolved]
  - Vision blurred [Not Recovered/Not Resolved]
  - Ocular hyperaemia [Unknown]
  - Dry eye [Unknown]
  - Product use complaint [Recovered/Resolved]
  - Eye irritation [Unknown]

NARRATIVE: CASE EVENT DATE: 20240216
